FAERS Safety Report 13185409 (Version 2)
Quarter: 2017Q2

REPORT INFORMATION
  Report Type: Spontaneous
  Country: IT (occurrence: JP)
  Receive Date: 20170203
  Receipt Date: 20170411
  Transmission Date: 20170830
  Serious: Yes (Other)
  Sender: FDA-Public Use
  Company Number: IT-SIGMA-TAU US-2017STPI000064

PATIENT
  Age: 77 Year
  Sex: Male

DRUGS (15)
  1. CARNITOR [Suspect]
     Active Substance: LEVOCARNITINE
     Indication: CARNITINE DEFICIENCY
     Dosage: 1000 MG, UNK
     Route: 010
  2. HEPARIN (IODISED) SODIUM [Concomitant]
     Indication: DIALYSIS
     Dosage: UNK
     Dates: start: 2016
  3. BAYASPIRIN [Concomitant]
     Active Substance: ASPIRIN
  4. CALCIUM CARBONATE. [Concomitant]
     Active Substance: CALCIUM CARBONATE
  5. CARVEDILOL. [Concomitant]
     Active Substance: CARVEDILOL
  6. CARNITOR [Suspect]
     Active Substance: LEVOCARNITINE
     Indication: CARDIAC FAILURE
     Dosage: 1000 MG, UNK
     Route: 042
     Dates: start: 2016
  7. NAFATAT [Suspect]
     Active Substance: NAFAMOSTAT MESYLATE
     Indication: HAEMORRHAGIC DIATHESIS
     Dosage: 160 MG, UNK
     Route: 042
     Dates: start: 20160922, end: 20161020
  8. CRESTOR [Concomitant]
     Active Substance: ROSUVASTATIN CALCIUM
  9. ONEALFA [Concomitant]
     Active Substance: ALFACALCIDOL
  10. NEXIUM [Concomitant]
     Active Substance: ESOMEPRAZOLE MAGNESIUM
  11. NAFATAT [Suspect]
     Active Substance: NAFAMOSTAT MESYLATE
     Indication: ANAEMIA
  12. FOSRENOL [Concomitant]
     Active Substance: LANTHANUM CARBONATE
  13. ARGAMATE [Concomitant]
     Active Substance: CALCIUM POLYSTYRENE SULFONATE
  14. CLOPIDOGREL [Concomitant]
     Active Substance: CLOPIDOGREL BISULFATE
  15. REGPARA [Concomitant]
     Active Substance: CINACALCET HYDROCHLORIDE

REACTIONS (9)
  - Shock [Unknown]
  - Nausea [Recovered/Resolved]
  - Anaemia [Unknown]
  - Dyspnoea [Recovered/Resolved]
  - Chest discomfort [Recovered/Resolved]
  - Haemorrhage subcutaneous [Unknown]
  - Haematochezia [Unknown]
  - Blood pressure decreased [Recovered/Resolved]
  - Nausea [Recovered/Resolved]

NARRATIVE: CASE EVENT DATE: 2016
